FAERS Safety Report 16042105 (Version 3)
Quarter: 2019Q4

REPORT INFORMATION
  Report Type: Spontaneous
  Country: TR (occurrence: TR)
  Receive Date: 20190306
  Receipt Date: 20191118
  Transmission Date: 20200122
  Serious: Yes (Death, Hospitalization)
  Sender: FDA-Public Use
  Company Number: TR-ABBVIE-19P-161-2693353-00

PATIENT
  Age: 74 Year
  Sex: Male

DRUGS (1)
  1. TARKA [Suspect]
     Active Substance: TRANDOLAPRIL\VERAPAMIL HYDROCHLORIDE
     Indication: HYPERTENSION
     Route: 048
     Dates: start: 20180817, end: 20180817

REACTIONS (2)
  - Atrioventricular block [Fatal]
  - Hypotension [Fatal]

NARRATIVE: CASE EVENT DATE: 20180817
